FAERS Safety Report 5334636-0 (Version None)
Quarter: 2007Q2

REPORT INFORMATION
  Report Type: 
  Country: None (occurrence: None)
  Receive Date: 20070525
  Receipt Date: 20070523
  Transmission Date: 20071010
  Serious: Yes (Life-Threatening, Hospitalization, Other)
  Sender: FDA-Public Use
  Company Number: A0652742A

PATIENT
  Age: 52 Year
  Sex: Female

DRUGS (5)
  1. ESKALITH [Suspect]
     Indication: BIPOLAR DISORDER
     Dosage: 900MG PER DAY
     Route: 048
     Dates: start: 20070427, end: 20070510
  2. LAMOTRIGINE [Suspect]
     Indication: BIPOLAR DISORDER
     Dosage: 150MG PER DAY
     Route: 048
     Dates: start: 20060701, end: 20070427
  3. RANITIDINE [Suspect]
     Indication: DRUG USE FOR UNKNOWN INDICATION
  4. LEVOTHYROXINE SODIUM [Suspect]
     Indication: DRUG USE FOR UNKNOWN INDICATION
  5. NO CONCURRENT MEDICATION [Concomitant]

REACTIONS (4)
  - INTENTIONAL SELF-INJURY [None]
  - RASH PRURITIC [None]
  - RENAL FAILURE [None]
  - SKIN EXFOLIATION [None]
